FAERS Safety Report 16539500 (Version 4)
Quarter: 2020Q1

REPORT INFORMATION
  Report Type: Report from Study
  Country: US (occurrence: US)
  Receive Date: 20190708
  Receipt Date: 20200212
  Transmission Date: 20200409
  Serious: Yes (Hospitalization, Other)
  Sender: FDA-Public Use
  Company Number: US-ASPEN-GLO2019US006697

PATIENT
  Age: 8 Year
  Sex: Male
  Weight: 57 kg

DRUGS (21)
  1. RUXOLITINIB [Suspect]
     Active Substance: RUXOLITINIB
     Dosage: 75 UNK
     Route: 048
     Dates: start: 20181120
  2. RUXOLITINIB [Suspect]
     Active Substance: RUXOLITINIB
     Dosage: 75 MG, BID
     Route: 048
     Dates: start: 20190705
  3. VINCRISTINE [Suspect]
     Active Substance: VINCRISTINE
     Dosage: 2 MG, SINGLE
     Route: 042
     Dates: start: 20190705
  4. METHOTREXATE. [Suspect]
     Active Substance: METHOTREXATE
     Indication: ACUTE LYMPHOCYTIC LEUKAEMIA
     Dosage: 12 MG, SINGLE
     Route: 037
     Dates: start: 20181120, end: 20190620
  5. CYCLOPHOSPHAMIDE. [Suspect]
     Active Substance: CYCLOPHOSPHAMIDE
     Indication: ACUTE LYMPHOCYTIC LEUKAEMIA
     Dosage: 1500 MG, SINGLE
     Route: 042
     Dates: start: 20181120
  6. CYCLOPHOSPHAMIDE. [Suspect]
     Active Substance: CYCLOPHOSPHAMIDE
     Dosage: 1400 MG
     Route: 042
     Dates: start: 20181120
  7. PEGASPARGASE [Suspect]
     Active Substance: PEGASPARGASE
     Dosage: 3600 IU, SINGLE
     Route: 042
  8. TIOGUANINE [Suspect]
     Active Substance: THIOGUANINE ANHYDROUS
     Indication: ACUTE LYMPHOCYTIC LEUKAEMIA
     Dosage: 620 MG, 1 DOSE WEEKLY
     Route: 048
     Dates: start: 20190523, end: 20190604
  9. METHOTREXATE. [Suspect]
     Active Substance: METHOTREXATE
     Dosage: 12 MG, SINGLE
     Route: 037
     Dates: start: 20190705
  10. MERCAPTOPURINE. [Suspect]
     Active Substance: MERCAPTOPURINE
     Dosage: 250 MG
     Route: 048
     Dates: start: 20190705
  11. PEGASPARGASE [Suspect]
     Active Substance: PEGASPARGASE
     Dosage: 3600 IU, SINGLE
     Route: 042
     Dates: start: 20190705
  12. RUXOLITINIB [Suspect]
     Active Substance: RUXOLITINIB
     Indication: ACUTE LYMPHOCYTIC LEUKAEMIA
     Dosage: 70 MG, BID
     Route: 048
     Dates: start: 20181120
  13. DOXORUBICIN [Suspect]
     Active Substance: DOXORUBICIN
     Indication: ACUTE LYMPHOCYTIC LEUKAEMIA
     Dosage: 38 MG, SINGLE
     Route: 042
     Dates: start: 20190425, end: 20190509
  14. CYTARABINE. [Suspect]
     Active Substance: CYTARABINE
     Indication: ACUTE LYMPHOCYTIC LEUKAEMIA
     Dosage: 110 MG, SINGLE
     Route: 042
     Dates: start: 20181120, end: 20190602
  15. DEXAMETHASONE. [Suspect]
     Active Substance: DEXAMETHASONE
     Indication: ACUTE LYMPHOCYTIC LEUKAEMIA
     Dosage: 8 MG, BID
     Route: 048
     Dates: start: 20190425, end: 20190509
  16. MERCAPTOPURINE. [Suspect]
     Active Substance: MERCAPTOPURINE
     Dosage: 250 MG, 1 DOSE WEEKLY
     Route: 048
     Dates: start: 20181120, end: 20190620
  17. PEGASPARGASE [Suspect]
     Active Substance: PEGASPARGASE
     Indication: ACUTE LYMPHOCYTIC LEUKAEMIA
     Dosage: 3750 IU
     Route: 030
     Dates: start: 20181204
  18. RUXOLITINIB [Suspect]
     Active Substance: RUXOLITINIB
     Dosage: 75 MG, BID
     Route: 048
     Dates: start: 20190620
  19. MERCAPTOPURINE. [Suspect]
     Active Substance: MERCAPTOPURINE
     Indication: ACUTE LYMPHOCYTIC LEUKAEMIA
     Dosage: 3750 IU, UNK
     Route: 048
     Dates: start: 20190215
  20. VINCRISTINE [Suspect]
     Active Substance: VINCRISTINE
     Indication: ACUTE LYMPHOCYTIC LEUKAEMIA
     Dosage: 2 MG, SINGLE
     Route: 042
     Dates: start: 20181204, end: 20190620
  21. CYCLOPHOSPHAMIDE. [Suspect]
     Active Substance: CYCLOPHOSPHAMIDE
     Dosage: 1500 MG, SINGLE
     Route: 042

REACTIONS (5)
  - Platelet count decreased [Recovering/Resolving]
  - Anorectal cellulitis [Recovered/Resolved]
  - Neutrophil count decreased [Recovered/Resolved]
  - Febrile neutropenia [Recovered/Resolved]
  - Neutropenia [Recovering/Resolving]

NARRATIVE: CASE EVENT DATE: 20190517
